FAERS Safety Report 11889571 (Version 1)
Quarter: 2016Q1

REPORT INFORMATION
  Report Type: Spontaneous
  Country: JP (occurrence: JP)
  Receive Date: 20160105
  Receipt Date: 20160105
  Transmission Date: 20160526
  Serious: Yes (Other)
  Sender: FDA-Public Use
  Company Number: PHJP2015JP008897

PATIENT
  Age: 17 Year
  Sex: Female

DRUGS (7)
  1. PREDNISOLONE. [Suspect]
     Active Substance: PREDNISOLONE
     Indication: SYSTEMIC LUPUS ERYTHEMATOSUS
     Dosage: UNK
     Route: 065
  2. NEORAL [Suspect]
     Active Substance: CYCLOSPORINE
     Dosage: 140 MG, UNK
     Route: 048
     Dates: start: 200704, end: 200912
  3. TACROLIMUS. [Suspect]
     Active Substance: TACROLIMUS
     Indication: SYSTEMIC LUPUS ERYTHEMATOSUS
     Dosage: UNK
     Route: 065
  4. RITUXIMAB [Concomitant]
     Active Substance: RITUXIMAB
     Indication: SYSTEMIC LUPUS ERYTHEMATOSUS
     Dosage: UNK
     Route: 065
  5. NEORAL [Suspect]
     Active Substance: CYCLOSPORINE
     Dosage: 120 MG, UNK
     Route: 048
     Dates: start: 201001, end: 201005
  6. MIZORIBINE [Concomitant]
     Active Substance: MIZORIBINE
     Indication: SYSTEMIC LUPUS ERYTHEMATOSUS
     Dosage: UNK
     Route: 065
  7. NEORAL [Suspect]
     Active Substance: CYCLOSPORINE
     Indication: SYSTEMIC LUPUS ERYTHEMATOSUS
     Dosage: 120 MG, UNK
     Route: 048
     Dates: start: 200612, end: 200703

REACTIONS (5)
  - Hypertension [Recovering/Resolving]
  - Product use issue [Unknown]
  - Obesity [Recovering/Resolving]
  - Concomitant disease aggravated [Recovering/Resolving]
  - Nephropathy [Unknown]

NARRATIVE: CASE EVENT DATE: 201005
